FAERS Safety Report 23380516 (Version 1)
Quarter: 2024Q1

REPORT INFORMATION
  Report Type: Spontaneous
  Country: GB (occurrence: GB)
  Receive Date: 20240109
  Receipt Date: 20240109
  Transmission Date: 20240409
  Serious: No
  Sender: FDA-Public Use
  Company Number: None

PATIENT
  Age: 22 Year
  Sex: Male
  Weight: 63 kg

DRUGS (7)
  1. IBUPROFEN [Suspect]
     Active Substance: IBUPROFEN
     Indication: Product used for unknown indication
     Dosage: 200 MILLIGRAM (TABLET)
     Route: 065
  2. BENZOYL PEROXIDE [Concomitant]
     Active Substance: BENZOYL PEROXIDE
     Indication: Product used for unknown indication
     Dosage: UNK (1 APPLICATION)
     Route: 065
     Dates: start: 20230816, end: 20231113
  3. LYMECYCLINE [Concomitant]
     Active Substance: LYMECYCLINE
     Indication: Product used for unknown indication
     Dosage: 1 DOSAGE FORM
     Route: 065
     Dates: start: 20231016, end: 20231113
  4. METHYLPHENIDATE [Concomitant]
     Active Substance: METHYLPHENIDATE
     Indication: Product used for unknown indication
     Dosage: 1 DOSAGE FORM
     Route: 065
     Dates: start: 20231103, end: 20231113
  5. ACETAMINOPHEN [Concomitant]
     Active Substance: ACETAMINOPHEN
     Indication: Product used for unknown indication
     Dosage: 2 DOSAGE FORM
     Route: 065
     Dates: start: 20231030, end: 20231030
  6. QUETIAPINE [Concomitant]
     Active Substance: QUETIAPINE
     Indication: Product used for unknown indication
     Dosage: 1 DOSAGE FORM
     Route: 065
     Dates: start: 20231102, end: 20231113
  7. ZEROCREAM [Concomitant]
     Indication: Product used for unknown indication
     Dosage: UNK (1 APPLICATION)
     Route: 065
     Dates: start: 20230817, end: 20230914

REACTIONS (1)
  - Cough [Recovered/Resolved]
